FAERS Safety Report 7971111-9 (Version None)
Quarter: 2011Q4

REPORT INFORMATION
  Report Type: 
  Country: None (occurrence: None)
  Receive Date: 20111212
  Receipt Date: 20111212
  Transmission Date: 20120403
  Serious: Yes (Other)
  Sender: FDA-Public Use
  Company Number: None

PATIENT
  Age: 53 Year
  Sex: Female
  Weight: 56.699 kg

DRUGS (1)
  1. RECLAST [Suspect]
     Indication: OSTEOPOROSIS
     Dosage: DON'T KNOW
     Route: 041
     Dates: start: 20110321, end: 20110321

REACTIONS (5)
  - MYALGIA [None]
  - CRYING [None]
  - MIDDLE INSOMNIA [None]
  - BONE PAIN [None]
  - ARTHRALGIA [None]
